FAERS Safety Report 9204858 (Version 2)
Quarter: 2013Q2

REPORT INFORMATION
  Report Type: Spontaneous
  Country: BR (occurrence: BR)
  Receive Date: 20130402
  Receipt Date: 20130412
  Transmission Date: 20140414
  Serious: Yes (Hospitalization)
  Sender: FDA-Public Use
  Company Number: BR-ABBOTT-13X-020-1069755-00

PATIENT
  Age: 26 Year
  Sex: Male
  Weight: 96 kg

DRUGS (2)
  1. DEPAKENE [Suspect]
     Indication: CONVULSION
     Dosage: ONE TABLET IN THE MORNING AND ONE AT NIGHT
     Route: 048
     Dates: start: 201207, end: 20130321
  2. DEPAKENE [Suspect]
     Indication: PROPHYLAXIS
     Dosage: ONE TABLET IN THE MORNING
     Route: 048
     Dates: start: 201207, end: 20130321

REACTIONS (5)
  - Convulsion [Recovered/Resolved]
  - Drug ineffective [Recovered/Resolved]
  - Weight increased [Not Recovered/Not Resolved]
  - Seborrhoea [Recovered/Resolved]
  - Dandruff [Recovered/Resolved]
